FAERS Safety Report 17258940 (Version 2)
Quarter: 2020Q1

REPORT INFORMATION
  Report Type: Spontaneous
  Country: US (occurrence: US)
  Receive Date: 20200110
  Receipt Date: 20200121
  Transmission Date: 20200409
  Serious: No
  Sender: FDA-Public Use
  Company Number: NVSC2020US005061

PATIENT
  Age: 92 Year

DRUGS (3)
  1. BEOVU [Suspect]
     Active Substance: BROLUCIZUMAB-DBLL
     Indication: AGE-RELATED MACULAR DEGENERATION
     Dosage: 6 MG, ONE SINGLE DOSE
     Route: 047
     Dates: start: 20190106
  2. LUCENTIS [Suspect]
     Active Substance: RANIBIZUMAB
     Indication: NEOVASCULAR AGE-RELATED MACULAR DEGENERATION
     Dosage: SOLUTION FOR INFUSION
     Route: 047
     Dates: start: 20190106
  3. BROLUCIZUMAB. [Concomitant]
     Active Substance: BROLUCIZUMAB
     Indication: PRODUCT USED FOR UNKNOWN INDICATION
     Route: 065
     Dates: start: 20190106

REACTIONS (3)
  - Off label use [Unknown]
  - Intentional product use issue [Unknown]
  - Eye pruritus [Unknown]

NARRATIVE: CASE EVENT DATE: 20190107
